FAERS Safety Report 5587930-2 (Version None)
Quarter: 2008Q1

REPORT INFORMATION
  Report Type: 
  Country: None (occurrence: None)
  Receive Date: 20080111
  Receipt Date: 20070716
  Transmission Date: 20080703
  Serious: No
  Sender: FDA-Public Use
  Company Number: US-KINGPHARMUSA00001-K200700898

PATIENT

DRUGS (2)
  1. CORGARD [Suspect]
  2. DOXAZOSIN [Suspect]

REACTIONS (2)
  - ASTHENIA [None]
  - DIZZINESS [None]
